FAERS Safety Report 5119009-8 (Version None)
Quarter: 2006Q3

REPORT INFORMATION
  Report Type: 
  Country: None (occurrence: None)
  Receive Date: 20060927
  Receipt Date: 20060922
  Transmission Date: 20061208
  Serious: Yes (Hospitalization)
  Sender: FDA-Public Use
  Company Number: 220682

PATIENT
  Age: 16 Year
  Sex: Male
  Weight: 49 kg

DRUGS (2)
  1. NUTROPIN [Suspect]
     Indication: GROWTH HORMONE DEFICIENCY
     Dosage: 4.8 MG, QD, SUBCUTANEOUS
     Route: 058
     Dates: start: 19961010, end: 20050817
  2. CONCERTA [Concomitant]

REACTIONS (1)
  - CONVULSION [None]
